FAERS Safety Report 10250360 (Version 2)
Quarter: 2014Q2

REPORT INFORMATION
  Report Type: Spontaneous
  Country: DE (occurrence: DE)
  Receive Date: 20140620
  Receipt Date: 20140627
  Transmission Date: 20141212
  Serious: Yes (Hospitalization, Other)
  Sender: FDA-Public Use
  Company Number: DE-GE HEALTHCARE MEDICAL DIAGNOSTICS-VISP-PR-1406S-0276

PATIENT
  Age: 76 Year
  Sex: Male
  Weight: 97 kg

DRUGS (20)
  1. VISIPAQUE [Suspect]
     Indication: BRAIN NEOPLASM
     Route: 042
     Dates: start: 20140605, end: 20140605
  2. VISIPAQUE [Suspect]
     Indication: DIAGNOSTIC PROCEDURE
  3. PANTOPRAZOL [Concomitant]
  4. SIMVASTATIN [Concomitant]
  5. TORASEMID [Concomitant]
  6. CANDESARTAN [Concomitant]
  7. BISOPROLOL [Concomitant]
  8. ISOSORBIDMONONITRAT [Concomitant]
  9. MOLSIDOMIN [Concomitant]
  10. TEVACIDOL [Concomitant]
  11. DEKRISTOL [Concomitant]
  12. MOVICOL [Concomitant]
  13. RENVELA [Concomitant]
  14. NOVORAPID [Concomitant]
  15. LEVEMIR [Concomitant]
  16. BRETARIS GENUAIR [Concomitant]
  17. OMEGA 3 [Concomitant]
  18. NITRO-SPRAY [Concomitant]
  19. CITALOPRAM [Concomitant]
  20. MARCUMAR NACH [Concomitant]

REACTIONS (6)
  - Troponin increased [Recovered/Resolved]
  - Blood creatine phosphokinase increased [Recovered/Resolved]
  - Electrocardiogram ST segment depression [Unknown]
  - Bundle branch block left [Unknown]
  - Hypersensitivity [Recovered/Resolved]
  - Chest pain [Recovered/Resolved]
